FAERS Safety Report 12194171 (Version 1)
Quarter: 2016Q1

REPORT INFORMATION
  Report Type: Spontaneous
  Country: US (occurrence: US)
  Receive Date: 20160321
  Receipt Date: 20160321
  Transmission Date: 20160526
  Serious: No
  Sender: FDA-Public Use
  Company Number: US-BAYER-2016-049900

PATIENT
  Age: 86 Year
  Sex: Male
  Weight: 67.12 kg

DRUGS (2)
  1. ALEVE [Suspect]
     Active Substance: NAPROXEN SODIUM
     Indication: ARTHRITIS
     Dosage: 1 DF, ONCE
     Dates: start: 20160310, end: 20160310
  2. BAYER LOW DOSE [Concomitant]
     Active Substance: ASPIRIN

REACTIONS (2)
  - Product use issue [None]
  - Drug effect incomplete [None]

NARRATIVE: CASE EVENT DATE: 20160310
